FAERS Safety Report 6230645-8 (Version None)
Quarter: 2009Q2

REPORT INFORMATION
  Report Type: 
  Country: None (occurrence: None)
  Receive Date: 20090616
  Receipt Date: 20080208
  Transmission Date: 20091009
  Serious: Yes (Other)
  Sender: FDA-Public Use
  Company Number: US-ASTRAZENECA-2007UW14365

PATIENT
  Age: 496 Month
  Sex: Female
  Weight: 136.1 kg

DRUGS (13)
  1. SEROQUEL [Suspect]
     Indication: INSOMNIA
     Route: 048
     Dates: start: 20040101, end: 20071201
  2. SEROQUEL [Suspect]
     Indication: DEPRESSION
     Route: 048
     Dates: start: 20040101, end: 20071201
  3. SEROQUEL [Suspect]
     Route: 048
     Dates: start: 20041014
  4. SEROQUEL [Suspect]
     Route: 048
     Dates: start: 20041014
  5. SEROQUEL [Suspect]
     Route: 048
     Dates: start: 20061215
  6. SEROQUEL [Suspect]
     Route: 048
     Dates: start: 20061215
  7. SEROQUEL [Suspect]
     Route: 048
     Dates: start: 20080416
  8. SEROQUEL [Suspect]
     Route: 048
     Dates: start: 20080416
  9. ZYPREXA [Concomitant]
     Dates: start: 20071201
  10. WELLBUTRIN XL [Concomitant]
     Route: 048
     Dates: start: 20041007
  11. EFFEXOR XR [Concomitant]
     Route: 048
     Dates: start: 20041108
  12. KLONOPIN [Concomitant]
     Dosage: 10MG TAB 1 AND HALF, POQ AM+ POQ HS
     Route: 048
     Dates: start: 20041108
  13. DEPAKOTE ER [Concomitant]
     Route: 048
     Dates: end: 20050214

REACTIONS (4)
  - BACK PAIN [None]
  - GLUCOSE TOLERANCE IMPAIRED [None]
  - NEUROPATHY PERIPHERAL [None]
  - TYPE 2 DIABETES MELLITUS [None]
